FAERS Safety Report 10033201 (Version 1)
Quarter: 2014Q1

REPORT INFORMATION
  Report Type: Spontaneous
  Country: FR (occurrence: FR)
  Receive Date: 20140324
  Receipt Date: 20140324
  Transmission Date: 20141002
  Serious: Yes (Death, Life-Threatening)
  Sender: FDA-Public Use
  Company Number: FR-TEVA-468612ISR

PATIENT
  Age: 64 Year
  Sex: Male

DRUGS (7)
  1. DOXORUBICINE TEVA [Suspect]
     Route: 025
     Dates: start: 20081216, end: 20081216
  2. LIPIODOL [Suspect]
     Route: 025
     Dates: start: 20081216, end: 20081216
  3. NISISCO 80MG [Concomitant]
     Dosage: 1 DOSAGE FORMS DAILY;
  4. ALLOPURINOL [Concomitant]
  5. SERECOR [Concomitant]
  6. IMOVANE [Concomitant]
  7. JOSIR 0.4MG [Concomitant]
     Dosage: 1 DOSAGE FORMS DAILY;

REACTIONS (2)
  - Respiratory distress [Fatal]
  - Condition aggravated [Fatal]
